FAERS Safety Report 6141642-5 (Version None)
Quarter: 2009Q2

REPORT INFORMATION
  Report Type: 
  Country: None (occurrence: None)
  Receive Date: 20090402
  Receipt Date: 20090324
  Transmission Date: 20091009
  Serious: Yes (Death, Hospitalization)
  Sender: FDA-Public Use
  Company Number: B0567609A

PATIENT
  Sex: Female

DRUGS (6)
  1. VENTOLIN [Suspect]
     Route: 055
     Dates: end: 20090223
  2. REDUCTIL [Suspect]
     Indication: OBESITY
     Route: 065
     Dates: start: 20081111
  3. IBUX [Concomitant]
     Indication: PAIN
  4. VESICARE [Concomitant]
     Indication: INCONTINENCE
  5. GLUCOPHAGE [Concomitant]
  6. ATARAX [Concomitant]

REACTIONS (13)
  - ANOXIC ENCEPHALOPATHY [None]
  - ASTHMA [None]
  - BRAIN INJURY [None]
  - BRAIN OEDEMA [None]
  - CARDIAC ARREST [None]
  - CIRCULATORY COLLAPSE [None]
  - DRUG INTERACTION [None]
  - DYSPNOEA [None]
  - HYPOXIA [None]
  - ISCHAEMIA [None]
  - LOSS OF CONSCIOUSNESS [None]
  - MALAISE [None]
  - NAUSEA [None]
